FAERS Safety Report 6084865-6 (Version None)
Quarter: 2009Q1

REPORT INFORMATION
  Report Type: 
  Country: None (occurrence: None)
  Receive Date: 20090220
  Receipt Date: 20090212
  Transmission Date: 20090719
  Serious: Yes (Disabling, Other)
  Sender: FDA-Public Use
  Company Number: GB-RANBAXY-2009RR-20504

PATIENT
  Age: 69 Year
  Sex: Male
  Weight: 68 kg

DRUGS (5)
  1. CIPROFLOXACIN [Suspect]
     Indication: LOWER RESPIRATORY TRACT INFECTION
     Dosage: 500 MG, QD
     Route: 048
     Dates: start: 20081112, end: 20081126
  2. DOXYCYCLINE [Concomitant]
     Indication: LOWER RESPIRATORY TRACT INFECTION
     Dosage: 100 MG, QD
     Route: 048
     Dates: start: 20080929, end: 20081013
  3. ERYTHROMYCIN [Concomitant]
     Indication: LOWER RESPIRATORY TRACT INFECTION
     Dosage: 250 MG, QID
     Route: 048
     Dates: start: 20080925, end: 20081001
  4. PREDNISOLONE [Concomitant]
     Indication: ASTHMA
     Dosage: 30 MG, QD
     Route: 048
     Dates: start: 20080925, end: 20080930
  5. SYMBICORT [Concomitant]
     Indication: ASTHMA
     Dosage: 1 DF, BID
     Route: 055
     Dates: start: 20080805

REACTIONS (4)
  - GAIT DISTURBANCE [None]
  - SPLINT APPLICATION [None]
  - TENDON RUPTURE [None]
  - TENDONITIS [None]
